FAERS Safety Report 7080663-5 (Version None)
Quarter: 2010Q4

REPORT INFORMATION
  Report Type: 
  Country: None (occurrence: None)
  Receive Date: 20101103
  Receipt Date: 20101025
  Transmission Date: 20110411
  Serious: Yes (Death)
  Sender: FDA-Public Use
  Company Number: DE-SANOFI-AVENTIS-2010SA033618

PATIENT
  Age: 59 Year
  Sex: Male

DRUGS (7)
  1. CLEXANE MULTIDOSE [Suspect]
     Indication: THROMBOSIS PROPHYLAXIS
     Route: 058
     Dates: start: 20100519, end: 20100601
  2. ANTIPSYCHOTICS [Concomitant]
     Route: 065
  3. NOVAMINSULFON [Concomitant]
     Route: 048
     Dates: start: 20100519, end: 20100601
  4. FUROSEMID [Concomitant]
     Route: 048
     Dates: start: 20100519, end: 20100601
  5. KALITRANS [Concomitant]
     Route: 048
     Dates: start: 20100519, end: 20100601
  6. RANITIC [Concomitant]
     Route: 048
     Dates: start: 20100519, end: 20100601
  7. SEROQUEL [Concomitant]
     Route: 048
     Dates: start: 20100519, end: 20100601

REACTIONS (1)
  - SUDDEN CARDIAC DEATH [None]
